FAERS Safety Report 11335111 (Version 3)
Quarter: 2016Q1

REPORT INFORMATION
  Report Type: Report from Study
  Country: ES (occurrence: ES)
  Receive Date: 20150804
  Receipt Date: 20160115
  Transmission Date: 20160525
  Serious: Yes (Hospitalization)
  Sender: FDA-Public Use
  Company Number: ES-ROCHE-1510431

PATIENT
  Age: 69 Year
  Sex: Male

DRUGS (9)
  1. BENDAMUSTINE [Suspect]
     Active Substance: BENDAMUSTINE
     Indication: CHRONIC LYMPHOCYTIC LEUKAEMIA
     Dosage: LAST DOSE PRIOR TO ONSET OF FEBRILE SYNDROME TAKEN ON 20/NOV/2014, AND PRIOR TO EPISODES OF NEUTROPE
     Route: 042
     Dates: start: 20140828
  2. TRANXILIUM [Concomitant]
     Active Substance: CLORAZEPATE DIPOTASSIUM
     Route: 065
  3. SUTRIL [Concomitant]
     Active Substance: TORSEMIDE
     Route: 065
  4. OBINUTUZUMAB [Suspect]
     Active Substance: OBINUTUZUMAB
     Indication: CHRONIC LYMPHOCYTIC LEUKAEMIA
     Dosage: LAST DOSE PRIOR TO ONSET OF FEBRILE SYNDROME TAKEN ON 19/NOV/2014, AND PRIOR TO EPISODES OF NEUTROPE
     Route: 042
     Dates: start: 20140827
  5. OMEPRAZOL [Concomitant]
     Active Substance: OMEPRAZOLE
     Route: 065
  6. DEXAMETHASONE. [Suspect]
     Active Substance: DEXAMETHASONE
     Indication: CHRONIC LYMPHOCYTIC LEUKAEMIA
     Dosage: LAST DOSE PRIOR TO ONSET OF EVENT TAKEN ON 20/NOV/2014
     Route: 065
     Dates: start: 20140829
  7. ZARATOR [Concomitant]
     Active Substance: ATORVASTATIN CALCIUM
     Route: 065
  8. RYTMONORM [Concomitant]
     Active Substance: PROPAFENONE
     Route: 065
  9. CARDURA [Concomitant]
     Active Substance: DOXAZOSIN MESYLATE
     Route: 065

REACTIONS (2)
  - Febrile neutropenia [Recovered/Resolved]
  - Pyrexia [Recovered/Resolved]

NARRATIVE: CASE EVENT DATE: 20141213
